FAERS Safety Report 4591459-8 (Version None)
Quarter: 2005Q1

REPORT INFORMATION
  Report Type: 
  Country: None (occurrence: None)
  Receive Date: 20050225
  Receipt Date: 20050217
  Transmission Date: 20050727
  Serious: Yes (Other)
  Sender: FDA-Public Use
  Company Number: EE-ABBOTT-05P-221-0291302-00

PATIENT
  Sex: Female

DRUGS (2)
  1. KLACID 500 SR [Suspect]
     Indication: PNEUMONIA
     Route: 048
  2. SALBUTEROL AERESOL [Concomitant]
     Indication: ASTHMA
     Dosage: NOT USED EVERY DAY

REACTIONS (3)
  - AGITATION [None]
  - BLOOD PRESSURE INCREASED [None]
  - HEART RATE INCREASED [None]
